FAERS Safety Report 9135077 (Version 1)
Quarter: 2013Q1

REPORT INFORMATION
  Report Type: Spontaneous
  Country: AU (occurrence: AU)
  Receive Date: 20130304
  Receipt Date: 20130304
  Transmission Date: 20140127
  Serious: Yes (Hospitalization)
  Sender: FDA-Public Use
  Company Number: AU-UCBSA-078901

PATIENT
  Age: 72 Year
  Sex: Male

DRUGS (1)
  1. KEPPRA [Suspect]
     Dosage: DAILY DOSE: 1000 MG
     Route: 048
     Dates: start: 20120824, end: 20120905

REACTIONS (1)
  - Hyponatraemia [Not Recovered/Not Resolved]
